FAERS Safety Report 6907316-5 (Version None)
Quarter: 2010Q3

REPORT INFORMATION
  Report Type: 
  Country: None (occurrence: None)
  Receive Date: 20100730
  Receipt Date: 20090803
  Transmission Date: 20110219
  Serious: No
  Sender: FDA-Public Use
  Company Number: 007

PATIENT
  Age: 55 Year
  Sex: Male
  Weight: 86.1834 kg

DRUGS (1)
  1. DR. FRANK'S JOINT + MUSCLE PAIN RELIEF [Suspect]
     Indication: ARTHRALGIA
     Dosage: 4 SPRAYS 4 X'S / DAY

REACTIONS (1)
  - HYPERSENSITIVITY [None]
